FAERS Safety Report 4518990-5 (Version None)
Quarter: 2004Q4

REPORT INFORMATION
  Report Type: 
  Country: None (occurrence: None)
  Receive Date: 20041203
  Receipt Date: 20041203
  Transmission Date: 20050328
  Serious: Yes (Hospitalization)
  Sender: FDA-Public Use
  Company Number: None

PATIENT
  Sex: Male
  Weight: 88 kg

DRUGS (2)
  1. GEMCITABINE [Suspect]
     Indication: PANCREATIC CARCINOMA
     Dosage: 700MG/M2 EVERY 22 DAYS
     Dates: start: 20041119
  2. GLEEVEC [Suspect]
     Indication: PANCREATIC CARCINOMA
     Dosage: 400MG/DAY
     Dates: start: 20041119, end: 20041125

REACTIONS (2)
  - ARTHRALGIA [None]
  - OEDEMA [None]
